FAERS Safety Report 6094210-8 (Version None)
Quarter: 2009Q1

REPORT INFORMATION
  Report Type: 
  Country: None (occurrence: None)
  Receive Date: 20090226
  Receipt Date: 20090213
  Transmission Date: 20090719
  Serious: Yes (Hospitalization, Other)
  Sender: FDA-Public Use
  Company Number: PHHY2009BR05168

PATIENT
  Sex: Female
  Weight: 87 kg

DRUGS (4)
  1. CODATEN [Suspect]
     Indication: BACK PAIN
     Dosage: 1 TABLET DAILY
     Route: 048
  2. CODATEN [Suspect]
     Indication: ARTHRALGIA
     Dosage: UNK
     Route: 048
  3. ACETAMINOPHEN W/ CODEINE [Concomitant]
     Dosage: 1 TABLET PER DAY
     Route: 048
  4. ARCOXIA [Concomitant]
     Dosage: UNK

REACTIONS (2)
  - INTERVERTEBRAL DISC PROTRUSION [None]
  - SPINAL OPERATION [None]
